FAERS Safety Report 4283697-9 (Version None)
Quarter: 2004Q1

REPORT INFORMATION
  Report Type: 
  Country: None (occurrence: None)
  Receive Date: 20040115
  Receipt Date: 20030228
  Transmission Date: 20041129
  Serious: Yes (Hospitalization)
  Sender: FDA-Public Use
  Company Number: NSADSS2003009633

PATIENT
  Age: 65 Year
  Sex: Male
  Weight: 94 kg

DRUGS (16)
  1. DOXIL [Suspect]
     Indication: MULTIPLE MYELOMA
     Dosage: 80 MG, 1 IN 28 DAY, INTRAVENOUS DRIP
     Route: 041
     Dates: start: 20011030, end: 20020426
  2. VINCRISTINE [Suspect]
     Indication: MULTIPLE MYELOMA
     Dosage: 2 MG, 1 IN 28 DAY; INTRAVENOUS DRIP
     Route: 041
     Dates: start: 20011030, end: 20020426
  3. DECADRON [Suspect]
     Indication: MULTIPLE MYELOMA
     Dosage: 1 IN 28 DAY
     Dates: start: 20011030, end: 20020426
  4. THALIDOMIDE (THALIDOMIDE) [Suspect]
     Indication: MULTIPLE MYELOMA
     Dosage: 50 MG, 1 IN 1 DAY; ORAL
     Route: 048
     Dates: start: 20011030
  5. PREDNISONE [Suspect]
     Indication: MULTIPLE MYELOMA
     Dosage: 50 MG, 1 IN 2 DAY
     Dates: start: 20020530
  6. TOPROL-XL [Concomitant]
  7. LANOXIN [Concomitant]
  8. ASPIRIN [Concomitant]
  9. DEMADEX [Concomitant]
  10. IMDUR [Concomitant]
  11. ALLOPURINOL [Concomitant]
  12. COUMADIN [Concomitant]
  13. FLUTAMIDE [Concomitant]
  14. INSULIN 70/30 (HUMAN MIXTARD) [Concomitant]
  15. DURAGESIC [Concomitant]
  16. METHADONE HCL [Concomitant]

REACTIONS (1)
  - INFECTION [None]
